FAERS Safety Report 17693715 (Version 2)
Quarter: 2020Q2

REPORT INFORMATION
  Report Type: Spontaneous
  Country: AE (occurrence: AE)
  Receive Date: 20200422
  Receipt Date: 20200430
  Transmission Date: 20200714
  Serious: Yes (Other)
  Sender: FDA-Public Use
  Company Number: AE-PFIZER INC-2020157504

PATIENT
  Age: 74 Year
  Sex: Female

DRUGS (6)
  1. SUNITINIB MALATE. [Suspect]
     Active Substance: SUNITINIB MALATE
     Indication: CLEAR CELL RENAL CELL CARCINOMA
     Dosage: 37.5 MG, CYCLIC (4 WEEKS ON/2 WEEKS OFF/WEEK 1-4: 37.5 MG; WEEK 5-6: OFF)
     Dates: start: 200912
  2. SUNITINIB MALATE. [Suspect]
     Active Substance: SUNITINIB MALATE
     Dosage: 25 MG, CYCLIC (4 DAYS/WEEK-NON-DIALYSIS DAYS)/WEEK 1-6: 25 MG
     Dates: start: 201005
  3. SUNITINIB MALATE. [Suspect]
     Active Substance: SUNITINIB MALATE
     Dosage: UNK
     Dates: start: 201510
  4. SUNITINIB MALATE. [Suspect]
     Active Substance: SUNITINIB MALATE
     Dosage: 37.5 MG, CYCLIC (WEEK 1-2: 37.5 MG; WEEK 3: OFF; WEEK 4-5: 37.5 MG; WEEK 6: OFF)
     Dates: start: 201003
  5. SUNITINIB MALATE. [Suspect]
     Active Substance: SUNITINIB MALATE
     Dosage: 37.5 MG, CYCLIC (WEEK 1-4: 37.5 MG; WEEK 5-6: OFF)
     Dates: start: 201106
  6. SUNITINIB MALATE. [Suspect]
     Active Substance: SUNITINIB MALATE
     Dosage: 37.5 MG, CYCLIC (WEEK 1-2: 37.5 MG; WEEK 3: OFF; WEEK 4-5: 37.5 MG; WEEK 6: OFF)
     Dates: start: 201107

REACTIONS (10)
  - Nausea [Unknown]
  - Neoplasm progression [Unknown]
  - Abdominal pain [Unknown]
  - Lethargy [Unknown]
  - Fatigue [Unknown]
  - Hypothyroidism [Unknown]
  - Taste disorder [Unknown]
  - Hypertension [Unknown]
  - Vomiting [Unknown]
  - Diarrhoea [Unknown]

NARRATIVE: CASE EVENT DATE: 201005
